FAERS Safety Report 7627816-2 (Version None)
Quarter: 2011Q3

REPORT INFORMATION
  Report Type: 
  Country: None (occurrence: None)
  Receive Date: 20110721
  Receipt Date: 20110715
  Transmission Date: 20111222
  Serious: Yes (Death, Life-Threatening, Hospitalization, Disabling)
  Sender: FDA-Public Use
  Company Number: US-GILEAD-2011-0040960

PATIENT
  Sex: Male

DRUGS (15)
  1. PROPRANOLOL [Concomitant]
  2. POTASSIUM [Concomitant]
  3. MIRALAX [Concomitant]
  4. OXYCODONE HCL [Concomitant]
  5. ALDACTONE [Concomitant]
  6. LASIX [Concomitant]
  7. LACTULOSE [Concomitant]
  8. LETAIRIS [Suspect]
     Indication: PRODUCT USED FOR UNKNOWN INDICATION
     Route: 048
     Dates: start: 20110321, end: 20110611
  9. REMODULIN [Concomitant]
  10. OMEPRAZOLE [Concomitant]
  11. SENNA [Concomitant]
  12. ZINC [Concomitant]
  13. MAGNESIUM OXIDE [Concomitant]
  14. PHENERGAN HCL [Concomitant]
  15. NEURONTIN [Concomitant]

REACTIONS (1)
  - PANCREATITIS [None]
